FAERS Safety Report 6806971-8 (Version None)
Quarter: 2010Q2

REPORT INFORMATION
  Report Type: 
  Country: None (occurrence: None)
  Receive Date: 20100629
  Receipt Date: 20080626
  Transmission Date: 20101027
  Serious: No
  Sender: FDA-Public Use
  Company Number: US-PFIZER INC-2008043790

PATIENT
  Age: 73 Year
  Sex: Male
  Weight: 83.01 kg

DRUGS (11)
  1. VIAGRA [Suspect]
     Indication: ERECTILE DYSFUNCTION
     Route: 048
     Dates: start: 20080516
  2. VIAGRA [Suspect]
     Indication: DIABETES MELLITUS
  3. METFORMIN HCL [Concomitant]
  4. SITAGLIPTIN [Concomitant]
  5. ATACAND [Concomitant]
  6. ACETYLSALICYLIC ACID [Concomitant]
  7. ALL OTHER THERAPEUTIC PRODUCTS [Concomitant]
  8. PERIOSTAT [Concomitant]
  9. CELEBREX [Concomitant]
  10. PROTONIX [Concomitant]
     Route: 048
  11. VYTORIN [Concomitant]

REACTIONS (1)
  - DRUG INEFFECTIVE [None]
